FAERS Safety Report 21322044 (Version 1)
Quarter: 2022Q3

REPORT INFORMATION
  Report Type: Spontaneous
  Country: US (occurrence: US)
  Receive Date: 20220912
  Receipt Date: 20220912
  Transmission Date: 20221027
  Serious: No
  Sender: FDA-Public Use
  Company Number: US-TAKEDA-2022TUS062639

PATIENT
  Sex: Female
  Weight: 72 kg

DRUGS (1)
  1. VYVANSE [Suspect]
     Active Substance: LISDEXAMFETAMINE DIMESYLATE
     Indication: Attention deficit hyperactivity disorder
     Dosage: 20 MILLIGRAM, QD
     Route: 065
     Dates: start: 20220309

REACTIONS (5)
  - Respiration abnormal [Unknown]
  - Panic reaction [Unknown]
  - Headache [Unknown]
  - Pyrexia [Unknown]
  - Abdominal pain upper [Unknown]
